FAERS Safety Report 8153935-0 (Version None)
Quarter: 2012Q1

REPORT INFORMATION
  Report Type: 
  Country: None (occurrence: None)
  Receive Date: 20120221
  Receipt Date: 20120221
  Transmission Date: 20120608
  Serious: No
  Sender: FDA-Public Use
  Company Number: None

PATIENT
  Sex: Female
  Weight: 61.234 kg

DRUGS (1)
  1. CYMBALTA [Suspect]
     Indication: DEPRESSION
     Dates: start: 20110420, end: 20120209

REACTIONS (5)
  - SOMNOLENCE [None]
  - PARAESTHESIA [None]
  - IRRITABILITY [None]
  - FEELING ABNORMAL [None]
  - FATIGUE [None]
